FAERS Safety Report 10567033 (Version 6)
Quarter: 2015Q2

REPORT INFORMATION
  Report Type: Report from Study
  Country: CA (occurrence: CA)
  Receive Date: 20141105
  Receipt Date: 20150521
  Transmission Date: 20150821
  Serious: Yes (Death, Hospitalization, Other)
  Sender: FDA-Public Use
  Company Number: CA-ABBVIE-14K-028-1286645-00

PATIENT
  Age: 54 Year
  Sex: Female

DRUGS (1)
  1. HUMIRA [Suspect]
     Active Substance: ADALIMUMAB
     Indication: CROHN^S DISEASE
     Route: 058
     Dates: start: 20130430, end: 20141125

REACTIONS (6)
  - Hypoaesthesia [Not Recovered/Not Resolved]
  - Aphasia [Not Recovered/Not Resolved]
  - Nasopharyngitis [Recovered/Resolved]
  - Nasal congestion [Recovered/Resolved]
  - Lung cancer metastatic [Unknown]
  - Brain cancer metastatic [Fatal]

NARRATIVE: CASE EVENT DATE: 20140903
